FAERS Safety Report 15155910 (Version 1)
Quarter: 2018Q3

REPORT INFORMATION
  Report Type: Spontaneous
  Country: DE (occurrence: DE)
  Receive Date: 20180717
  Receipt Date: 20180717
  Transmission Date: 20181010
  Serious: Yes (Other)
  Sender: FDA-Public Use
  Company Number: DE-US WORLDMEDS, LLC-STA_00019649

PATIENT
  Age: 71 Year
  Sex: Male
  Weight: 89 kg

DRUGS (5)
  1. APOMORPHINE HYDROCHLORIDE [Suspect]
     Active Substance: APOMORPHINE HYDROCHLORIDE
     Indication: PARKINSON^S DISEASE
     Route: 058
     Dates: start: 201402
  2. BISOPROLOL 10MG [Concomitant]
     Indication: HYPERTENSION
  3. FUROSEMID 40MG [Concomitant]
     Indication: HYPERTENSION
  4. MARCUMAR 3MG [Concomitant]
     Indication: ATRIAL FIBRILLATION
  5. FORMOTEROL DA [Concomitant]
     Indication: ASTHMA
     Route: 055

REACTIONS (2)
  - Injection site necrosis [Not Recovered/Not Resolved]
  - Injection site nodule [Not Recovered/Not Resolved]

NARRATIVE: CASE EVENT DATE: 20140712
